FAERS Safety Report 9624701 (Version 3)
Quarter: 2013Q4

REPORT INFORMATION
  Report Type: Spontaneous
  Country: US (occurrence: US)
  Receive Date: 20131015
  Receipt Date: 20131204
  Transmission Date: 20140711
  Serious: No
  Sender: FDA-Public Use
  Company Number: US-009507513-1310USA001423

PATIENT
  Age: 20 Year
  Sex: Female
  Weight: 138.78 kg

DRUGS (2)
  1. NEXPLANON [Suspect]
     Indication: CONTRACEPTION
     Dosage: 1 ROD
     Route: 059
     Dates: start: 20130925, end: 20130925
  2. NEXPLANON [Suspect]
     Dosage: 1 ROD
     Route: 059
     Dates: start: 20130925

REACTIONS (3)
  - Device difficult to use [Recovered/Resolved]
  - Implant site haemorrhage [Recovered/Resolved]
  - Product quality issue [Unknown]
